FAERS Safety Report 10156724 (Version 1)
Quarter: 2014Q2

REPORT INFORMATION
  Report Type: Spontaneous
  Country: US (occurrence: None)
  Receive Date: 20140506
  Receipt Date: 20140506
  Transmission Date: 20141212
  Serious: No
  Sender: FDA-Public Use
  Company Number: None

PATIENT
  Age: 23 Year
  Sex: Female

DRUGS (1)
  1. MAKENA 250MG/ML THER-RX CORP [Suspect]
     Indication: PREMATURE LABOUR
     Route: 030
     Dates: start: 20140121, end: 20140502

REACTIONS (1)
  - Hepatic function abnormal [None]
